FAERS Safety Report 5238977-7 (Version None)
Quarter: 2007Q1

REPORT INFORMATION
  Report Type: 
  Country: None (occurrence: None)
  Receive Date: 20061208
  Receipt Date: 20050608
  Transmission Date: 20070707
  Serious: Yes (Other)
  Sender: FDA-Public Use
  Company Number: 2005UW08833

PATIENT
  Age: 66 Year
  Sex: Female
  Weight: 136 kg

DRUGS (4)
  1. CRESTOR [Suspect]
     Indication: BLOOD CHOLESTEROL INCREASED
     Dosage: 5 MG DAILY PO
     Route: 048
     Dates: start: 20050605
  2. CARDIZEM [Concomitant]
  3. DIOVAN [Concomitant]
  4. ALLOPURINOL [Concomitant]

REACTIONS (2)
  - CONSTIPATION [None]
  - RENAL DISORDER [None]
